FAERS Safety Report 5136181-4 (Version None)
Quarter: 2006Q4

REPORT INFORMATION
  Report Type: 
  Country: None (occurrence: None)
  Receive Date: 20061027
  Receipt Date: 20061025
  Transmission Date: 20070319
  Serious: Yes (Death)
  Sender: FDA-Public Use
  Company Number: 2006UW20603

PATIENT
  Age: 29 Year
  Sex: Female

DRUGS (8)
  1. ZOLADEX [Suspect]
     Route: 058
  2. ACCUTANE [Suspect]
     Route: 048
  3. AERIUS [Concomitant]
  4. CELEXA [Concomitant]
  5. EFFEXOR [Concomitant]
  6. MINOCIN [Concomitant]
  7. NAPROXEN [Concomitant]
  8. PAXIL [Concomitant]

REACTIONS (1)
  - COMPLETED SUICIDE [None]
